FAERS Safety Report 9383822 (Version 1)
Quarter: 2013Q3

REPORT INFORMATION
  Report Type: Spontaneous
  Country: US (occurrence: US)
  Receive Date: 20130704
  Receipt Date: 20130704
  Transmission Date: 20140515
  Serious: No
  Sender: FDA-Public Use
  Company Number: US-B.I. PHARMACEUTICALS,INC./RIDGEFIELD-2013-BI-18793BP

PATIENT
  Age: 69 Year
  Sex: Male
  Weight: 75 kg

DRUGS (2)
  1. COMBIVENT [Suspect]
     Indication: EMPHYSEMA
     Dosage: STRENGTH: 20 MCG / 100 MCG; DAILY DOSE: 80MCG/400MCG
     Route: 055
     Dates: start: 20130627
  2. COMBIVENT MDI [Concomitant]
     Indication: EMPHYSEMA
     Dosage: STRENGTH: 18MCG/103MCG; DAILY DOSE: 144MCG/1004MCG
     Route: 055
     Dates: start: 2011, end: 201306

REACTIONS (1)
  - Administration related reaction [Recovered/Resolved]
